FAERS Safety Report 19082512 (Version 2)
Quarter: 2021Q2

REPORT INFORMATION
  Report Type: Spontaneous
  Country: AR (occurrence: AR)
  Receive Date: 20210401
  Receipt Date: 20210402
  Transmission Date: 20210717
  Serious: Yes (Other)
  Sender: FDA-Public Use
  Company Number: NVSC2021AR072180

PATIENT
  Age: 78 Year
  Sex: Male

DRUGS (6)
  1. AMOXICILLIN. [Concomitant]
     Active Substance: AMOXICILLIN
     Indication: ANTIBIOTIC THERAPY
     Dosage: 875 MG, Q12H (ONE TABLET EVERY 12 HOURS)
     Route: 065
  2. ZOLEDRONIC ACID [Suspect]
     Active Substance: ZOLEDRONIC ACID
     Indication: OSTEOPOROSIS
     Dosage: UNK (HIGH DOSE)
     Route: 065
  3. CLAVULANIC ACID [Concomitant]
     Active Substance: CLAVULANIC ACID
     Indication: ANTIBIOTIC THERAPY
     Dosage: 125 MG, Q12H (ONE TABLET EVERY 12 HOURS)
     Route: 065
  4. POVIDONE?IODINE. [Concomitant]
     Active Substance: POVIDONE-IODINE
     Indication: IRRIGATION THERAPY
     Dosage: UNK, TIW
     Route: 065
  5. CHLORHEXIDINE [Concomitant]
     Active Substance: CHLORHEXIDINE
     Indication: IRRIGATION THERAPY
     Dosage: UNK, TIW
     Route: 065
  6. SALINE [Concomitant]
     Active Substance: SODIUM CHLORIDE
     Indication: IRRIGATION THERAPY
     Dosage: UNK, TIW
     Route: 065

REACTIONS (1)
  - Osteonecrosis of jaw [Unknown]
